FAERS Safety Report 5235028-5 (Version None)
Quarter: 2007Q1

REPORT INFORMATION
  Report Type: 
  Country: None (occurrence: None)
  Receive Date: 20070207
  Receipt Date: 20070130
  Transmission Date: 20070707
  Serious: Yes (Death)
  Sender: FDA-Public Use
  Company Number: 163-21880-07011539

PATIENT
  Age: 54 Year
  Sex: Female

DRUGS (10)
  1. REVLIMID [Suspect]
     Indication: THYROID CANCER
     Dosage: 25 MG, 1 IN 1 D, ORAL
     Route: 048
     Dates: start: 20061113
  2. PRILOSEC [Concomitant]
  3. ATENOLOL [Concomitant]
  4. SYNTHROID [Concomitant]
  5. ZYRTEC [Concomitant]
  6. ASPIRIN [Concomitant]
  7. LORTAB [Concomitant]
  8. GLIPIZIDE [Concomitant]
  9. DURAGESIC-100 [Concomitant]
  10. METAMUCIL (METAMUCIL ^PROCTER + GAMBLE^) [Concomitant]

REACTIONS (2)
  - MALIGNANT NEOPLASM PROGRESSION [None]
  - THYROID CANCER [None]
